FAERS Safety Report 9880939 (Version 1)
Quarter: 2014Q1

REPORT INFORMATION
  Report Type: Spontaneous
  Country: GB (occurrence: GB)
  Receive Date: 20140207
  Receipt Date: 20140207
  Transmission Date: 20141002
  Serious: Yes (Other)
  Sender: FDA-Public Use
  Company Number: GB-TEVA-459066ISR

PATIENT
  Age: 36 Year
  Sex: Male
  Weight: 82.5 kg

DRUGS (2)
  1. DIAZEPAM [Suspect]
     Dates: start: 2000
  2. METHADONE [Suspect]
     Indication: DRUG WITHDRAWAL SYNDROME
     Dates: start: 2000

REACTIONS (1)
  - Urine flow decreased [Not Recovered/Not Resolved]
